FAERS Safety Report 6856503-3 (Version None)
Quarter: 2010Q2

REPORT INFORMATION
  Report Type: 
  Country: None (occurrence: None)
  Receive Date: 20100630
  Receipt Date: 20100304
  Transmission Date: 20101027
  Serious: No
  Sender: FDA-Public Use
  Company Number: 1000012304

PATIENT
  Age: 77 Year
  Sex: Female

DRUGS (4)
  1. BYSTOLIC [Suspect]
  2. DIGITEK [Suspect]
  3. TOPROL-XL [Suspect]
  4. VERAPAMIL [Suspect]

REACTIONS (1)
  - DRUG INTOLERANCE [None]
